FAERS Safety Report 10301396 (Version 1)
Quarter: 2014Q3

REPORT INFORMATION
  Report Type: Spontaneous
  Country: US (occurrence: None)
  Receive Date: 20140709
  Receipt Date: 20140709
  Transmission Date: 20150326
  Serious: No
  Sender: FDA-Public Use
  Company Number: None

PATIENT
  Age: 39 Year
  Sex: Female
  Weight: 81.65 kg

DRUGS (1)
  1. XULANE [Suspect]
     Active Substance: ETHINYL ESTRADIOL\NORELGESTROMIN
     Indication: CONTRACEPTION
     Dosage: PATCH  ONCE PER WEK APPLIED AS MEDICATED PATCH TO SKIN
     Route: 062
     Dates: start: 20140623, end: 20140706

REACTIONS (8)
  - Drug intolerance [None]
  - Product substitution issue [None]
  - Diarrhoea [None]
  - Abdominal distension [None]
  - Dizziness [None]
  - Blood glucose fluctuation [None]
  - Device adhesion issue [None]
  - Flatulence [None]

NARRATIVE: CASE EVENT DATE: 20140707
